FAERS Safety Report 6465850-9 (Version None)
Quarter: 2009Q4

REPORT INFORMATION
  Report Type: 
  Country: None (occurrence: None)
  Receive Date: 20091127
  Receipt Date: 20091116
  Transmission Date: 20100525
  Serious: Yes (Hospitalization)
  Sender: FDA-Public Use
  Company Number: 231732J09USA

PATIENT
  Age: 56 Year
  Sex: Female

DRUGS (3)
  1. REBIF [Suspect]
     Indication: MULTIPLE SCLEROSIS
     Dosage: 44 MCG, 3 IN 1 WEEKS, SUBCUTANEOUS
     Route: 058
     Dates: start: 20021112, end: 20090101
  2. UNSPECIFIED MEDICATIONS (ALL OTHER THERAPEUTIC PRODUCTS) [Concomitant]
  3. LANTUS [Concomitant]

REACTIONS (3)
  - DECUBITUS ULCER [None]
  - INFECTION [None]
  - URINARY TRACT INFECTION [None]
